FAERS Safety Report 9005502 (Version 1)
Quarter: 2013Q1

REPORT INFORMATION
  Report Type: Spontaneous
  Country: US (occurrence: US)
  Receive Date: 20130109
  Receipt Date: 20130109
  Transmission Date: 20140127
  Serious: No
  Sender: FDA-Public Use
  Company Number: US-ASTRAZENECA-2012SE94657

PATIENT
  Sex: Female

DRUGS (2)
  1. ARIMIDEX [Suspect]
     Dosage: GENIRIC
     Route: 048
  2. ARIMIDEX [Suspect]
     Route: 048

REACTIONS (1)
  - Neuropathy peripheral [Recovered/Resolved]
